FAERS Safety Report 8833872 (Version 1)
Quarter: 2012Q4

REPORT INFORMATION
  Report Type: 
  Country: JP (occurrence: JP)
  Receive Date: 20121011
  Receipt Date: 20121011
  Transmission Date: 20130627
  Serious: Yes (Hospitalization)
  Sender: FDA-Public Use
  Company Number: JP-GE HEALTHCARE MEDICAL DIAGNOSTICS-OMPQ-NO-1003L-0152

PATIENT
  Age: 76 Year
  Sex: Male

DRUGS (7)
  1. OMNIPAQUE [Suspect]
     Indication: PANCREATIC CYST
     Dosage: dose not reported
     Route: 042
     Dates: start: 20081118, end: 20081118
  2. VALSARTAN (DIOVAN) [Concomitant]
  3. FAMOTIDINE (GASTER D) [Concomitant]
  4. CAFFEINE [Concomitant]
  5. SALICYLAMIDE [Concomitant]
  6. PARACETAMOL [Concomitant]
  7. PROMETHAZINE METHYLENE DISALICYLATE [Concomitant]

REACTIONS (6)
  - Acute generalised exanthematous pustulosis [Recovered/Resolved]
  - Rash pustular [Recovered/Resolved]
  - Skin test positive [Recovered/Resolved]
  - Lymphocyte stimulation test positive [Recovered/Resolved]
  - Erythema [Recovered/Resolved]
  - Pyrexia [Recovered/Resolved]
